FAERS Safety Report 13467363 (Version 5)
Quarter: 2017Q3

REPORT INFORMATION
  Report Type: Spontaneous
  Country: JP (occurrence: JP)
  Receive Date: 20170421
  Receipt Date: 20170821
  Transmission Date: 20171127
  Serious: Yes (Death, Hospitalization, Other)
  Sender: FDA-Public Use
  Company Number: JP-009507513-1702JPN011353

PATIENT
  Age: 77 Year
  Sex: Male
  Weight: 41.8 kg

DRUGS (5)
  1. PREDONINE [Concomitant]
     Active Substance: PREDNISOLONE
     Indication: ERYTHRODERMIC PSORIASIS
     Dosage: 15 MG, UNK
     Route: 048
  2. PIPERACILLIN AND TAZOBACTAM [Concomitant]
     Active Substance: PIPERACILLIN SODIUM\TAZOBACTAM SODIUM
     Indication: ENDOCARDITIS
     Dosage: 4.5 G TWICE A DAY
     Route: 042
     Dates: start: 2013, end: 2013
  3. CUBICIN [Suspect]
     Active Substance: DAPTOMYCIN
     Indication: STAPHYLOCOCCAL INFECTION
     Dosage: 300MG, ONCE DAILY, DIV
     Dates: start: 20130906, end: 20131002
  4. CUBICIN [Suspect]
     Active Substance: DAPTOMYCIN
     Indication: ENDOCARDITIS
  5. REMICADE [Suspect]
     Active Substance: INFLIXIMAB
     Indication: ERYTHRODERMIC PSORIASIS
     Dosage: 300 MG ONCE DAILY, DIV
     Route: 041
     Dates: start: 20130819, end: 20130819

REACTIONS (8)
  - Embolic cerebral infarction [Fatal]
  - Cardio-respiratory arrest [Fatal]
  - Pyrexia [Unknown]
  - Encephalopathy [Fatal]
  - Asphyxia [Fatal]
  - Endocarditis [Unknown]
  - Aspiration [Fatal]
  - Staphylococcal sepsis [Unknown]

NARRATIVE: CASE EVENT DATE: 2013
